FAERS Safety Report 6427848-6 (Version None)
Quarter: 2009Q4

REPORT INFORMATION
  Report Type: 
  Country: None (occurrence: None)
  Receive Date: 20091105
  Receipt Date: 20091028
  Transmission Date: 20100525
  Serious: Yes (Other)
  Sender: FDA-Public Use
  Company Number: JP-ASTRAZENECA-2009SE23308

PATIENT
  Age: 71 Year
  Sex: Male
  Weight: 54 kg

DRUGS (3)
  1. DIPRIVAN [Suspect]
     Indication: INDUCTION OF ANAESTHESIA
     Route: 042
  2. FENTANYL CITRATE [Suspect]
     Route: 042
  3. VECURONIUM BROMIDE [Suspect]
     Route: 042

REACTIONS (3)
  - BLOOD PRESSURE DECREASED [None]
  - ERYTHEMA OF EYELID [None]
  - EYELID OEDEMA [None]
